FAERS Safety Report 21158902 (Version 1)
Quarter: 2022Q3

REPORT INFORMATION
  Report Type: Spontaneous
  Country: US (occurrence: US)
  Receive Date: 20220802
  Receipt Date: 20220802
  Transmission Date: 20221027
  Serious: Yes (Other)
  Sender: FDA-Public Use
  Company Number: US-BRISTOL-MYERS SQUIBB COMPANY-2022-080888

PATIENT
  Age: 68 Year
  Sex: Female

DRUGS (2)
  1. SPRYCEL [Suspect]
     Active Substance: DASATINIB
     Indication: Chronic myeloid leukaemia
     Dosage: ONCE DAILY
     Route: 048
     Dates: start: 20220628
  2. SPRYCEL [Suspect]
     Active Substance: DASATINIB
     Indication: Lung neoplasm malignant
     Dosage: 70 MG DAILY
     Route: 065

REACTIONS (1)
  - Pulmonary oedema [Unknown]
